FAERS Safety Report 4375447-2 (Version None)
Quarter: 2004Q2

REPORT INFORMATION
  Report Type: 
  Country: None (occurrence: None)
  Receive Date: 20040607
  Receipt Date: 20040525
  Transmission Date: 20050107
  Serious: Yes (Other)
  Sender: FDA-Public Use
  Company Number: DSA_80659_2004

PATIENT
  Sex: Female

DRUGS (6)
  1. XYREM [Suspect]
     Indication: NARCOLEPSY
     Dosage: 4.5 G NIGHTLY PO
     Route: 048
     Dates: start: 20040401, end: 20040520
  2. XYREM [Suspect]
     Indication: NARCOLEPSY
     Dosage: 6 G PO
     Route: 048
     Dates: start: 20040520
  3. WATER PILL [Concomitant]
  4. POTASSIUM [Concomitant]
  5. ATIVAN [Concomitant]
  6. ZYRTEC-D /USA/ [Concomitant]

REACTIONS (7)
  - ERYTHEMA [None]
  - GINGIVAL BLEEDING [None]
  - GINGIVAL SWELLING [None]
  - RASH MACULAR [None]
  - SKIN BURNING SENSATION [None]
  - THROAT IRRITATION [None]
  - THROAT TIGHTNESS [None]
